FAERS Safety Report 19739345 (Version 1)
Quarter: 2021Q3

REPORT INFORMATION
  Report Type: Spontaneous
  Country: US (occurrence: US)
  Receive Date: 20210820
  Receipt Date: 20210820
  Transmission Date: 20211014
  Serious: No
  Sender: FDA-Public Use
  Company Number: None

PATIENT

DRUGS (1)
  1. VENTAVIS [Suspect]
     Active Substance: ILOPROST
     Dosage: ?          OTHER STRENGTH:20 MCG/2ML;?
     Route: 055

REACTIONS (3)
  - Product appearance confusion [None]
  - Incorrect route of product administration [None]
  - Circumstance or information capable of leading to medication error [None]
